FAERS Safety Report 20562889 (Version 2)
Quarter: 2022Q1

REPORT INFORMATION
  Report Type: Other
  Country: US (occurrence: None)
  Receive Date: 20220307
  Receipt Date: 20220313
  Transmission Date: 20220423
  Serious: No
  Sender: FDA-Public Use
  Company Number: US-ROCHE-3041161

PATIENT
  Sex: Female

DRUGS (5)
  1. OCREVUS [Suspect]
     Active Substance: OCRELIZUMAB
     Indication: Relapsing multiple sclerosis
     Dosage: 600 MG EVERY 6 MONTHS
     Route: 065
  2. PREDNISONE [Concomitant]
     Active Substance: PREDNISONE
  3. TECFIDERA [Concomitant]
     Active Substance: DIMETHYL FUMARATE
  4. COPAXONE [Concomitant]
     Active Substance: GLATIRAMER ACETATE
  5. PLAQUENIL [Concomitant]
     Active Substance: HYDROXYCHLOROQUINE SULFATE

REACTIONS (2)
  - COVID-19 [Unknown]
  - Connective tissue disorder [Unknown]
